FAERS Safety Report 23234838 (Version 1)
Quarter: 2023Q4

REPORT INFORMATION
  Report Type: Spontaneous
  Country: US (occurrence: None)
  Receive Date: 20231127
  Receipt Date: 20231127
  Transmission Date: 20240110
  Serious: Yes (Other)
  Sender: FDA-Public Use
  Company Number: None

PATIENT
  Age: 25 Year
  Sex: Female

DRUGS (1)
  1. IRON SUCROSE [Suspect]
     Active Substance: IRON SUCROSE

REACTIONS (5)
  - Infusion related reaction [None]
  - Pyrexia [None]
  - Chills [None]
  - Exposure during pregnancy [None]
  - Flushing [None]

NARRATIVE: CASE EVENT DATE: 20231110
